FAERS Safety Report 17611327 (Version 1)
Quarter: 2020Q2

REPORT INFORMATION
  Report Type: Spontaneous
  Country: IT (occurrence: IT)
  Receive Date: 20200401
  Receipt Date: 20200401
  Transmission Date: 20200713
  Serious: Yes (Hospitalization, Other)
  Sender: FDA-Public Use
  Company Number: IT-AMGEN-ITASP2020050289

PATIENT
  Age: 72 Year
  Sex: Female

DRUGS (1)
  1. ADALIMUMAB [Suspect]
     Active Substance: ADALIMUMAB
     Indication: PSORIASIS
     Dosage: 40 MILLIGRAM, QWK
     Route: 065

REACTIONS (3)
  - Dermatomyositis [Unknown]
  - Muscular weakness [Unknown]
  - Dysphagia [Unknown]

NARRATIVE: CASE EVENT DATE: 20200101
